FAERS Safety Report 4732422-3 (Version None)
Quarter: 2005Q3

REPORT INFORMATION
  Report Type: 
  Country: None (occurrence: None)
  Receive Date: 20050803
  Receipt Date: 20050706
  Transmission Date: 20060218
  Serious: Yes (Disabling)
  Sender: FDA-Public Use
  Company Number: 2005UW10224

PATIENT
  Age: 60 Year
  Sex: Male
  Weight: 131.8 kg

DRUGS (3)
  1. SEROQUEL [Suspect]
     Indication: PSYCHOTIC DISORDER
     Route: 048
  2. SEROQUEL [Interacting]
     Indication: BIPOLAR DISORDER
     Route: 048
  3. APOKYN [Interacting]
     Indication: PARKINSON'S DISEASE
     Dosage: NOT USED IN EVENINGS
     Route: 030

REACTIONS (6)
  - CONFUSIONAL STATE [None]
  - DELIRIUM [None]
  - DISORIENTATION [None]
  - DRUG INTERACTION [None]
  - DYSARTHRIA [None]
  - SOMNOLENCE [None]
